FAERS Safety Report 9314209 (Version 2)
Quarter: 2013Q2

REPORT INFORMATION
  Report Type: Spontaneous
  Country: FR (occurrence: None)
  Receive Date: 20130522
  Receipt Date: 20130612
  Transmission Date: 20140414
  Serious: Yes (Hospitalization, Other)
  Sender: FDA-Public Use
  Company Number: 2013RR-69195

PATIENT
  Age: 70 Year
  Sex: Female
  Weight: 65 kg

DRUGS (6)
  1. METFORMINE [Suspect]
     Indication: TYPE 2 DIABETES MELLITUS
     Dosage: 3000 MG/DAY
  2. INDAPAMIDE [Suspect]
  3. KETOPROFEN [Suspect]
     Route: 042
  4. METFORMIN (METFORMIN) [Concomitant]
  5. ACETAMINOPHEN (ACETAMINOPHEN) [Concomitant]
  6. MORPHINE [Concomitant]

REACTIONS (10)
  - Lactic acidosis [None]
  - Renal failure acute [None]
  - Respiratory distress [None]
  - Hypoglycaemia [None]
  - Drug interaction [None]
  - Oliguria [None]
  - Hypothermia [None]
  - Vomiting [None]
  - Tachycardia [None]
  - Hypotension [None]
